FAERS Safety Report 19694188 (Version 2)
Quarter: 2021Q3

REPORT INFORMATION
  Report Type: Report from Study
  Country: CA (occurrence: CA)
  Receive Date: 20210813
  Receipt Date: 20210917
  Transmission Date: 20211014
  Serious: Yes (Life-Threatening)
  Sender: FDA-Public Use
  Company Number: CA-ROCHE-2875553

PATIENT
  Age: 44 Year
  Sex: Female
  Weight: 54.5 kg

DRUGS (9)
  1. TYLENOL [Concomitant]
     Active Substance: ACETAMINOPHEN
     Dosage: SUBSEQUENT DOSES ON: 10JUL2013, 13OCT2016,14AUG2012, 15JAN2013, 18DEC2013, 29JAN2013, 30JUL2013, 31J
     Dates: start: 20140107, end: 20140107
  2. OCRELIZUMAB. [Suspect]
     Active Substance: OCRELIZUMAB
     Dosage: 520ML SUBSEQUENT DOSES ON: 06/FEB/2018, 12/DEC/2019, 16JUN2020, 22AUG2018, 30MAY2019
     Route: 042
     Dates: start: 20170829, end: 20170829
  3. METHYLPREDNISOLONE. [Concomitant]
     Active Substance: METHYLPREDNISOLONE
     Dosage: SUBSEQUENT DOSES ON: 06FEB2018, 06FEB2018, 06MAY2015, 07APR2016, 07JAN2014, 07MAR2017, 09DEC2014, 10
     Dates: start: 20120731, end: 20120731
  4. TYLENOL [Concomitant]
     Active Substance: ACETAMINOPHEN
     Dates: start: 2000
  5. TYLENOL [Concomitant]
     Active Substance: ACETAMINOPHEN
     Indication: HEADACHE
     Dosage: 19APR2016
     Dates: start: 20160407, end: 20160407
  6. TYLENOL [Concomitant]
     Active Substance: ACETAMINOPHEN
     Dosage: SUBSEQUENT DOSES ON: 06MAY2015, 07MAR2017, 09DEC2014, 10NOV2015, 12DEC2019, 16JUN2020, 17JUN2014, 21
     Dates: start: 20140603, end: 20140603
  7. OCRELIZUMAB. [Suspect]
     Active Substance: OCRELIZUMAB
     Indication: PRIMARY PROGRESSIVE MULTIPLE SCLEROSIS
     Dosage: 14/AUG/2012, 15/JAN/2013 (INFUSION REACTION ), 29/JAN/2013, 10/JUL/2013, 30/JUL/2013,18/DEC/2013, 03
     Route: 042
     Dates: start: 20120731, end: 20120731
  8. OCRELIZUMAB. [Suspect]
     Active Substance: OCRELIZUMAB
     Indication: PRIMARY PROGRESSIVE MULTIPLE SCLEROSIS
     Dosage: SUBSEQUENT DOSES ON: 19/APR/2016, 27/SEP/2016, 13/OCT/2016, 07/MAR/2017,22/AUG/2018, 30/MAY/2019, 16
     Route: 042
     Dates: start: 20160407, end: 20160407
  9. BENADRYL [Concomitant]
     Active Substance: DIPHENHYDRAMINE HYDROCHLORIDE
     Dosage: SUBSEQUENT DOSES ON: 06FEB2018, 06FEB2018, 06MAY2015, 07APR2016, 07JAN2014, 07MAR2017, 09DEC2014, 10
     Dates: start: 20120731, end: 20120731

REACTIONS (1)
  - Infusion related reaction [Recovered/Resolved]

NARRATIVE: CASE EVENT DATE: 20210715
